FAERS Safety Report 14708217 (Version 15)
Quarter: 2021Q4

REPORT INFORMATION
  Report Type: Report from Study
  Country: CZ (occurrence: CZ)
  Receive Date: 20180403
  Receipt Date: 20211122
  Transmission Date: 20220303
  Serious: Yes (Hospitalization, Other)
  Sender: FDA-Public Use
  Company Number: PHHY2018CZ027779

PATIENT
  Age: 5 Year
  Sex: Female
  Weight: 53 kg

DRUGS (19)
  1. DABRAFENIB [Suspect]
     Active Substance: DABRAFENIB
     Indication: Malignant melanoma
     Dosage: UNK
     Route: 065
     Dates: start: 20171212, end: 20180215
  2. DABRAFENIB [Suspect]
     Active Substance: DABRAFENIB
     Dosage: UNK
     Route: 065
     Dates: start: 20180221, end: 20180319
  3. DABRAFENIB [Suspect]
     Active Substance: DABRAFENIB
     Dosage: UNK
     Route: 065
     Dates: start: 20180411, end: 20180710
  4. DABRAFENIB [Suspect]
     Active Substance: DABRAFENIB
     Dosage: UNK
     Route: 065
     Dates: end: 20200114
  5. DABRAFENIB [Suspect]
     Active Substance: DABRAFENIB
     Dosage: UNK
     Route: 065
     Dates: end: 20201029
  6. TRAMETINIB [Suspect]
     Active Substance: TRAMETINIB
     Indication: Malignant melanoma
     Dosage: 0.7 MG, UNK
     Route: 048
     Dates: start: 20171212, end: 20180215
  7. TRAMETINIB [Suspect]
     Active Substance: TRAMETINIB
     Indication: Astrocytoma malignant
     Dosage: 1.17 MG (0.025 MG/KG), QD (SOLUTION)
     Route: 048
     Dates: start: 20180221, end: 20180319
  8. TRAMETINIB [Suspect]
     Active Substance: TRAMETINIB
     Dosage: UNK
     Route: 065
     Dates: start: 20180411, end: 20180710
  9. TRAMETINIB [Suspect]
     Active Substance: TRAMETINIB
     Dosage: 1.215 MG, QD
     Route: 048
     Dates: end: 20200114
  10. TRAMETINIB [Suspect]
     Active Substance: TRAMETINIB
     Dosage: UNK
     Route: 065
     Dates: end: 20201029
  11. SULFAMETHOXAZOLE\TRIMETHOPRIM [Concomitant]
     Active Substance: SULFAMETHOXAZOLE\TRIMETHOPRIM
     Indication: Prophylaxis
     Dosage: 480 MG, (2X1 AND ? TBL EVERY MONDAY, TUESDAY, WED)
     Route: 065
  12. SULFAMETHOXAZOLE\TRIMETHOPRIM [Concomitant]
     Active Substance: SULFAMETHOXAZOLE\TRIMETHOPRIM
     Dosage: 600 MG, BID
     Route: 065
  13. HYDROCORTISONE [Concomitant]
     Active Substance: HYDROCORTISONE
     Indication: Febrile infection
     Dosage: UNK
     Route: 042
  14. VIGANTOL [Concomitant]
     Indication: Vitamin D deficiency
     Dosage: 4 DRP, QD (4 DROPS IN THE MORNING)
     Route: 065
  15. TRIPTORELIN [Concomitant]
     Active Substance: TRIPTORELIN
     Indication: Puberty
     Dosage: 11.25 MG (3 MONTHS)
     Route: 065
  16. EUTHYROX [Concomitant]
     Active Substance: LEVOTHYROXINE SODIUM
     Indication: Hypothyroidism
     Dosage: 50 UG, QD
     Route: 065
  17. EUTHYROX [Concomitant]
     Active Substance: LEVOTHYROXINE SODIUM
     Dosage: 75 UG, QD
     Route: 065
  18. ASCORBIC ACID\RUTIN [Concomitant]
     Active Substance: ASCORBIC ACID\RUTIN
     Indication: Epistaxis
     Dosage: 2X1 TABLET
     Route: 065
  19. ASCORBIC ACID\RUTIN [Concomitant]
     Active Substance: ASCORBIC ACID\RUTIN
     Dosage: 120 MG, BID
     Route: 065

REACTIONS (37)
  - Tonsillitis [Recovered/Resolved]
  - Hyperpyrexia [Recovered/Resolved]
  - C-reactive protein increased [Recovered/Resolved]
  - C-reactive protein increased [Unknown]
  - Staphylococcal infection [Unknown]
  - Pneumonia viral [Recovered/Resolved]
  - Laryngitis [Recovered/Resolved]
  - Cough [Not Recovered/Not Resolved]
  - Dyspnoea [Recovered/Resolved]
  - Lower respiratory tract infection [Recovered/Resolved]
  - Subclavian vein thrombosis [Recovered/Resolved]
  - Dental caries [Recovered/Resolved]
  - Hypothyroidism [Unknown]
  - Urinary tract infection [Recovered/Resolved]
  - Ingrowing nail [Recovered/Resolved]
  - Nail bed inflammation [Unknown]
  - Aphthous ulcer [Recovered/Resolved]
  - Concomitant disease aggravated [Unknown]
  - Tonsillitis [Recovered/Resolved]
  - Dermatitis [Recovered/Resolved]
  - Obesity [Unknown]
  - Hair colour changes [Unknown]
  - Eczema [Unknown]
  - Alanine aminotransferase increased [Unknown]
  - Aspartate aminotransferase increased [Unknown]
  - Anaemia [Unknown]
  - Paronychia [Recovered/Resolved]
  - Ingrowing nail [Recovered/Resolved]
  - Coronavirus infection [Recovered/Resolved]
  - Upper respiratory tract infection [Recovered/Resolved]
  - Nail bed inflammation [Recovered/Resolved]
  - Herpes zoster [Recovered/Resolved]
  - COVID-19 [Recovered/Resolved]
  - Pyrexia [Recovered/Resolved]
  - Cough [Recovered/Resolved]
  - Oropharyngeal pain [Recovered/Resolved]
  - Anosmia [Recovered/Resolved]

NARRATIVE: CASE EVENT DATE: 20180130
